FAERS Safety Report 24122632 (Version 1)
Quarter: 2024Q3

REPORT INFORMATION
  Report Type: Spontaneous
  Country: NL (occurrence: NL)
  Receive Date: 20240723
  Receipt Date: 20240723
  Transmission Date: 20241017
  Serious: Yes (Hospitalization)
  Sender: Unknown Manufacturer
  Company Number: None

PATIENT
  Age: 64 Year
  Sex: Male
  Weight: 58 kg

DRUGS (20)
  1. GEMCITABINE [Suspect]
     Active Substance: GEMCITABINE
     Indication: Non-small cell lung cancer
     Dosage: 2040
     Dates: start: 20240516
  2. CISPLATIN [Suspect]
     Active Substance: CISPLATIN
     Indication: Non-small cell lung cancer
     Dates: start: 20240516
  3. FOLIC ACID [Concomitant]
     Active Substance: FOLIC ACID
     Indication: Product used for unknown indication
     Dosage: TABLET, 0,5 MG (MILLIGRAM)
  4. NATRIUMWATERSTOFCARBONAAT [Concomitant]
     Indication: Product used for unknown indication
  5. PREDNISOLONE [Concomitant]
     Active Substance: PREDNISOLONE
     Indication: Product used for unknown indication
  6. LEFLUNOMIDE [Concomitant]
     Active Substance: LEFLUNOMIDE
     Indication: Product used for unknown indication
  7. NATRIUMCHLORIDE INFVLST [Concomitant]
     Indication: Product used for unknown indication
  8. NORTRIPTYLINE [Concomitant]
     Active Substance: NORTRIPTYLINE
     Indication: Product used for unknown indication
  9. NEBIVOLOL [Concomitant]
     Active Substance: NEBIVOLOL
     Indication: Product used for unknown indication
  10. ASPIRIN [Concomitant]
     Active Substance: ASPIRIN
     Indication: Product used for unknown indication
  11. ATORVASTATIN [Concomitant]
     Active Substance: ATORVASTATIN
     Indication: Product used for unknown indication
  12. PANTOPRAZOLE SODIUM [Concomitant]
     Active Substance: PANTOPRAZOLE SODIUM
     Indication: Product used for unknown indication
  13. ACETAMINOPHEN [Concomitant]
     Active Substance: ACETAMINOPHEN
     Indication: Product used for unknown indication
     Dosage: TABLET, 500 MG (MILLIGRAM)
  14. LEFLUNOMIDE [Concomitant]
     Active Substance: LEFLUNOMIDE
     Indication: Product used for unknown indication
     Dosage: TABLET, 20 MG (MILLIGRAM)
  15. MAGNESIUMSULFAAT INFVLST [Concomitant]
     Indication: Product used for unknown indication
  16. NADROPARINE INJVLST [Concomitant]
     Indication: Product used for unknown indication
     Dosage: INJECTIEVLOEISTOF, 9500 IE/ML (EENHEDEN PER MILLILITER)
  17. NINTEDANIB [Concomitant]
     Active Substance: NINTEDANIB
     Indication: Product used for unknown indication
  18. TAMSULOSIN HYDROCHLORIDE [Concomitant]
     Active Substance: TAMSULOSIN HYDROCHLORIDE
     Indication: Product used for unknown indication
  19. CALCIUMGLUCONAAT [Concomitant]
     Indication: Product used for unknown indication
  20. CALCIUMCARBONAAT [Concomitant]
     Indication: Product used for unknown indication

REACTIONS (1)
  - Pancytopenia [Recovering/Resolving]
